FAERS Safety Report 9387272 (Version 2)
Quarter: 2016Q1

REPORT INFORMATION
  Report Type: Report from Study
  Country: US (occurrence: US)
  Receive Date: 20130708
  Receipt Date: 20160211
  Transmission Date: 20160526
  Serious: Yes (Hospitalization, Other)
  Sender: FDA-Public Use
  Company Number: US-ROCHE-1244143

PATIENT
  Age: 74 Year
  Sex: Male
  Weight: 66.28 kg

DRUGS (24)
  1. NEXIUM [Concomitant]
     Active Substance: ESOMEPRAZOLE MAGNESIUM
     Dosage: DELAYED RELEASE
     Route: 065
  2. ASA [Concomitant]
     Active Substance: ASPIRIN
     Route: 048
  3. DIGOXIN. [Concomitant]
     Active Substance: DIGOXIN
     Route: 048
  4. TOPROL XL [Concomitant]
     Active Substance: METOPROLOL SUCCINATE
     Dosage: 25 TABLET SR 24 HR
     Route: 048
  5. LEUCOVORIN CALCIUM. [Concomitant]
     Active Substance: LEUCOVORIN CALCIUM
     Dosage: INJECTION IN D5W 250 ML, DAILY OVER 2 HOURS FOR 1 DAY AT A RATE OF 125ML/HR
     Route: 065
  6. FLUTICASONE PROPIONATE. [Concomitant]
     Active Substance: FLUTICASONE PROPIONATE
     Dosage: 50 MCG/ACT SUSPENSION
     Route: 045
  7. SYMBICORT [Concomitant]
     Active Substance: BUDESONIDE\FORMOTEROL FUMARATE DIHYDRATE
     Dosage: 160-4.5 MCG/ACT AEROSOL INHALATION DAILY
     Route: 065
  8. GRANISETRON HYDROCHLORIDE. [Concomitant]
     Active Substance: GRANISETRON HYDROCHLORIDE
     Dosage: OVER 10 MINUTES IN 50 ML NS AT RATE OF 300 ML/HR
     Route: 042
  9. CARBOPLATIN. [Concomitant]
     Active Substance: CARBOPLATIN
     Route: 042
  10. FLUOROURACIL. [Concomitant]
     Active Substance: FLUOROURACIL
     Dosage: CONTINUOUS OVER 46 HOURS FOR 1 DAY
     Route: 042
  11. ARANESP [Concomitant]
     Active Substance: DARBEPOETIN ALFA
     Dosage: DAILY FOR 1 DAY
     Route: 058
  12. HERCEPTIN [Suspect]
     Active Substance: TRASTUZUMAB
     Indication: GASTRIC CANCER
     Dosage: IN 250 ML NS AT RATE OF 500 ML/HR, STARTED ON 30/SEP/2011
     Route: 042
  13. HERCEPTIN [Suspect]
     Active Substance: TRASTUZUMAB
     Indication: METASTASES TO LIVER
     Dosage: IN 250 ML NS AT RATE OF 500 ML/HR, DAILY OVER 30 MINUTES FOR 1 DAY
     Route: 042
  14. PROCHLORPERAZINE MALEATE. [Concomitant]
     Active Substance: PROCHLORPERAZINE MALEATE
     Dosage: PRN
     Route: 048
  15. ALOXI [Concomitant]
     Active Substance: PALONOSETRON HYDROCHLORIDE
     Dosage: IN NS 50 ML AT THE RATE OF 300 ML/HR, DAILY OVER 10 MINUTES FOR 1 DAY
     Route: 065
  16. DIGOXIN. [Concomitant]
     Active Substance: DIGOXIN
     Route: 048
  17. PACLITAXEL. [Concomitant]
     Active Substance: PACLITAXEL
     Route: 042
  18. OXALIPLATIN. [Concomitant]
     Active Substance: OXALIPLATIN
     Dosage: IN D5W 500 ML DAILY OVER 2 HOURS, AT A RATE OF 250 ML/HR
     Route: 042
  19. HERCEPTIN [Suspect]
     Active Substance: TRASTUZUMAB
     Indication: METASTASES TO LYMPH NODES
  20. ONDANSETRON [Concomitant]
     Active Substance: ONDANSETRON
     Route: 048
  21. ASA [Concomitant]
     Active Substance: ASPIRIN
     Route: 048
  22. PROCRIT [Concomitant]
     Active Substance: ERYTHROPOIETIN
     Dosage: 40,000 UNITS DAILY FOR 1 DAY
     Route: 058
  23. DEXAMETHASONE SODIUM PHOSPHATE. [Concomitant]
     Active Substance: DEXAMETHASONE SODIUM PHOSPHATE
     Dosage: IN NS 50 ML AT THE RATE OF 300 ML/HR, DAILY OVER 10 MINUTES FOR 1 DAY
     Route: 042
  24. DEXAMETHASONE SODIUM [Concomitant]
     Dosage: AT RATE OF 300 ML/HR
     Route: 042

REACTIONS (20)
  - Hyperhidrosis [Recovering/Resolving]
  - Nausea [Recovering/Resolving]
  - Dehydration [Recovered/Resolved]
  - Occult blood positive [Unknown]
  - Abdominal pain upper [Unknown]
  - Weight decreased [Unknown]
  - Hyperhidrosis [Unknown]
  - Productive cough [Recovering/Resolving]
  - Drug hypersensitivity [Unknown]
  - Ageusia [Unknown]
  - Atrial fibrillation [Unknown]
  - Fatigue [Recovered/Resolved]
  - Dyspnoea exertional [Recovering/Resolving]
  - Dysgeusia [Unknown]
  - Alopecia [Recovering/Resolving]
  - Decreased appetite [Unknown]
  - Diarrhoea [Recovered/Resolved]
  - Pyrexia [Recovering/Resolving]
  - Anaemia [Recovering/Resolving]
  - Paraesthesia [Recovering/Resolving]

NARRATIVE: CASE EVENT DATE: 201107
